FAERS Safety Report 4392618-X (Version None)
Quarter: 2004Q3

REPORT INFORMATION
  Report Type: 
  Country: None (occurrence: None)
  Receive Date: 20040702
  Receipt Date: 20040322
  Transmission Date: 20050211
  Serious: Yes (Other)
  Sender: FDA-Public Use
  Company Number: 2004UW05485

PATIENT
  Age: 50 Year
  Sex: Female
  Weight: 50.8029 kg

DRUGS (3)
  1. CRESTOR [Suspect]
     Indication: HYPERCHOLESTEROLAEMIA
     Dosage: 10 MG QD PO
     Route: 048
     Dates: start: 20040301
  2. MULTI-VITAMINS [Concomitant]
  3. VITAMIN C [Concomitant]

REACTIONS (4)
  - DYSPEPSIA [None]
  - MUSCLE TIGHTNESS [None]
  - MYALGIA [None]
  - VOMITING [None]
